FAERS Safety Report 4494959-4 (Version None)
Quarter: 2004Q4

REPORT INFORMATION
  Report Type: 
  Country: None (occurrence: None)
  Receive Date: 20041105
  Receipt Date: 20041105
  Transmission Date: 20050328
  Serious: Yes (Hospitalization)
  Sender: FDA-Public Use
  Company Number: None

PATIENT
  Age: 44 Year
  Sex: Male
  Weight: 110.9 kg

DRUGS (7)
  1. GEMCITABINE [Suspect]
     Indication: METASTATIC NEOPLASM
     Dosage: 216MG    OVER 24 HRS    INTRAVENOU
     Route: 042
     Dates: start: 20040824, end: 20040825
  2. IRINOTECAN [Suspect]
     Indication: METASTATIC NEOPLASM
     Dosage: 240MG   OVER 24HRS   INTRAVENOUS
     Route: 042
     Dates: start: 20040825, end: 20040826
  3. HUMULIN 70/30 [Concomitant]
  4. LOTREL [Concomitant]
  5. NEURONTIN [Concomitant]
  6. LIPITOR [Concomitant]
  7. SYNTHROID [Concomitant]

REACTIONS (6)
  - ABDOMINAL DISTENSION [None]
  - FEBRILE NEUTROPENIA [None]
  - NAUSEA [None]
  - RENAL FAILURE ACUTE [None]
  - SMALL INTESTINAL OBSTRUCTION [None]
  - WHITE BLOOD CELL COUNT DECREASED [None]
